FAERS Safety Report 8504321-2 (Version None)
Quarter: 2012Q3

REPORT INFORMATION
  Report Type: 
  Country: None (occurrence: None)
  Receive Date: 20120711
  Receipt Date: 20120706
  Transmission Date: 20120928
  Serious: Yes (Other)
  Sender: FDA-Public Use
  Company Number: US-PFIZER INC-2012162450

PATIENT
  Sex: Female

DRUGS (1)
  1. LYRICA [Suspect]
     Indication: FIBROMYALGIA
     Dosage: 75 2XD

REACTIONS (4)
  - VISION BLURRED [None]
  - ALOPECIA [None]
  - CYSTITIS INTERSTITIAL [None]
  - HEADACHE [None]
